FAERS Safety Report 9465052 (Version 2)
Quarter: 2013Q3

REPORT INFORMATION
  Report Type: Spontaneous
  Country: KP (occurrence: KR)
  Receive Date: 20130819
  Receipt Date: 20130917
  Transmission Date: 20140515
  Serious: Yes (Other)
  Sender: FDA-Public Use
  Company Number: KP-SPECTRUM PHARMACEUTICALS, INC.-13-F-KR-00229

PATIENT
  Age: 75 Year
  Sex: Male

DRUGS (2)
  1. FOLOTYN [Suspect]
     Indication: NON-HODGKIN^S LYMPHOMA
     Dosage: 20 MG, WEEKLY
     Route: 042
     Dates: start: 20130717, end: 20130731
  2. FOLOTYN [Suspect]
     Dosage: 40 MG, WEEKLY
     Route: 042
     Dates: start: 20130626, end: 20130703

REACTIONS (1)
  - Malignant neoplasm progression [Not Recovered/Not Resolved]
